FAERS Safety Report 7237648-5 (Version None)
Quarter: 2011Q1

REPORT INFORMATION
  Report Type: 
  Country: None (occurrence: None)
  Receive Date: 20110121
  Receipt Date: 20110117
  Transmission Date: 20110831
  Serious: Yes (Death, Other)
  Sender: FDA-Public Use
  Company Number: PHHY2011CH03731

PATIENT
  Age: 57 Year
  Sex: Female

DRUGS (3)
  1. PREDNISONE [Concomitant]
  2. CYCLOSPORINE [Suspect]
  3. MYCOPHENOLATE MOFETIL [Concomitant]

REACTIONS (10)
  - SHOCK [None]
  - SKIN NECROSIS [None]
  - AMERICAN TRYPANOSOMIASIS [None]
  - SERRATIA BACTERAEMIA [None]
  - SKIN LESION [None]
  - PANNICULITIS [None]
  - DERMATITIS BULLOUS [None]
  - SUBCUTANEOUS NODULE [None]
  - HISTIOCYTOSIS HAEMATOPHAGIC [None]
  - MULTI-ORGAN FAILURE [None]
